FAERS Safety Report 23438101 (Version 2)
Quarter: 2024Q1

REPORT INFORMATION
  Report Type: Spontaneous
  Country: NL (occurrence: NL)
  Receive Date: 20240124
  Receipt Date: 20240205
  Transmission Date: 20240410
  Serious: Yes (Other)
  Sender: FDA-Public Use
  Company Number: NL-MLMSERVICE-20240109-4763027-1

PATIENT
  Age: 53 Year
  Sex: Female

DRUGS (2)
  1. CORTIZONE 10 INTENSIVE HEALING [Suspect]
     Active Substance: HYDROCORTISONE
     Indication: Product used for unknown indication
     Dosage: UNK
     Route: 061
     Dates: end: 2020
  2. CORTICOSTEROID NOS [Suspect]
     Active Substance: CORTICOSTEROID NOS
     Indication: Product used for unknown indication

REACTIONS (5)
  - Open angle glaucoma [Recovering/Resolving]
  - Glaucoma [Recovering/Resolving]
  - Dyschromatopsia [Recovering/Resolving]
  - Visual field defect [Recovering/Resolving]
  - Pupillary reflex impaired [Recovering/Resolving]

NARRATIVE: CASE EVENT DATE: 20200101
